FAERS Safety Report 5744534-6 (Version None)
Quarter: 2008Q2

REPORT INFORMATION
  Report Type: 
  Country: None (occurrence: None)
  Receive Date: 20080516
  Receipt Date: 20080430
  Transmission Date: 20081010
  Serious: Yes (Other)
  Sender: FDA-Public Use
  Company Number: 2008AL002966

PATIENT
  Age: 79 Year
  Sex: Male
  Weight: 81.6475 kg

DRUGS (2)
  1. DIGOXIN [Suspect]
  2. INSULIN [Concomitant]

REACTIONS (3)
  - BLOOD GLUCOSE DECREASED [None]
  - DIABETIC COMA [None]
  - FALL [None]
